FAERS Safety Report 14362186 (Version 1)
Quarter: 2018Q1

REPORT INFORMATION
  Report Type: Spontaneous
  Country: US (occurrence: US)
  Receive Date: 20180105
  Receipt Date: 20180105
  Transmission Date: 20180509
  Serious: No
  Sender: FDA-Public Use
  Company Number: None

PATIENT
  Sex: Male

DRUGS (1)
  1. CAPECITABINE 500MG WESTWARD PHARMACEUTICALS [Suspect]
     Active Substance: CAPECITABINE
     Indication: METASTASES TO LIVER
     Dosage: 1500MG TWICE DAILY FOR 2 WEEKS ON 1 WEEK OFF PO
     Route: 048
     Dates: start: 20170913

REACTIONS (2)
  - Therapy cessation [None]
  - Palmar-plantar erythrodysaesthesia syndrome [None]
